FAERS Safety Report 4386879-0 (Version None)
Quarter: 2004Q2

REPORT INFORMATION
  Report Type: 
  Country: None (occurrence: None)
  Receive Date: 20040630
  Receipt Date: 20040603
  Transmission Date: 20050107
  Serious: Yes (Other)
  Sender: FDA-Public Use
  Company Number: US-BRISTOL-MYERS SQUIBB COMPANY-12604682

PATIENT
  Age: 73 Year
  Sex: Male
  Weight: 62 kg

DRUGS (15)
  1. CISPLATIN [Suspect]
     Indication: MESOTHELIOMA
     Dosage: CYCLE 1: 16 JUL 2003: 132 MG
     Route: 042
     Dates: start: 20030827, end: 20030827
  2. PEMETREXED DISODIUM [Suspect]
     Indication: MESOTHELIOMA
     Dosage: CYCLE 1: 16 JUL 2003: 880 MG
     Route: 042
     Dates: start: 20030827, end: 20030827
  3. DURAGESIC [Concomitant]
     Indication: PAIN
     Dates: start: 20030601
  4. DILAUDID [Concomitant]
     Indication: PAIN
     Dates: start: 20030601
  5. RESTORIL [Concomitant]
     Indication: INSOMNIA
     Dates: start: 20030601
  6. PREVACID [Concomitant]
     Indication: GASTROOESOPHAGEAL REFLUX DISEASE
     Dates: start: 20030716
  7. REGLAN [Concomitant]
     Indication: GASTROOESOPHAGEAL REFLUX DISEASE
     Dates: start: 20030829
  8. MEGACE [Concomitant]
     Indication: DECREASED APPETITE
     Dates: start: 20030716
  9. FERROUS SULFATE TAB [Concomitant]
     Indication: ANAEMIA
     Dates: start: 20030601
  10. FOLIC ACID [Concomitant]
     Indication: VITAMIN SUPPLEMENTATION
     Dates: start: 20030709
  11. VITAMIN B-12 [Concomitant]
     Indication: VITAMIN SUPPLEMENTATION
     Dates: start: 20030709
  12. ULTRAM [Concomitant]
     Indication: PAIN
     Dates: start: 20030903
  13. COLACE [Concomitant]
     Indication: CONSTIPATION
     Dates: start: 20030903
  14. SENNA [Concomitant]
     Indication: CONSTIPATION
     Dates: start: 20030701
  15. MILK OF MAGNESIA TAB [Concomitant]
     Indication: CONSTIPATION
     Dates: start: 20030701

REACTIONS (3)
  - OEDEMA PERIPHERAL [None]
  - PERICARDITIS [None]
  - PULMONARY OEDEMA [None]
